FAERS Safety Report 10077244 (Version 1)
Quarter: 2014Q2

REPORT INFORMATION
  Report Type: Spontaneous
  Country: US (occurrence: US)
  Receive Date: 20140414
  Receipt Date: 20140414
  Transmission Date: 20141212
  Serious: No
  Sender: FDA-Public Use
  Company Number: US-BANPHARM-20131124

PATIENT
  Age: 31 Year
  Sex: Female
  Weight: 70.29 kg

DRUGS (1)
  1. NAPROXEN SODIUM 220 MG [Suspect]
     Indication: PAIN
     Dosage: 2 DF,
     Route: 048
     Dates: start: 20130321, end: 20130321

REACTIONS (1)
  - Drug effect decreased [Unknown]
